FAERS Safety Report 24557464 (Version 1)
Quarter: 2024Q4

REPORT INFORMATION
  Report Type: Spontaneous
  Country: US (occurrence: US)
  Receive Date: 20241028
  Receipt Date: 20241028
  Transmission Date: 20250114
  Serious: No
  Sender: GLAXOSMITHKLINE
  Company Number: US-GSKCCFUS-Case-02131925_AE-117578

PATIENT
  Sex: Male

DRUGS (1)
  1. ANORO ELLIPTA [Suspect]
     Active Substance: UMECLIDINIUM BROMIDE\VILANTEROL TRIFENATATE
     Indication: Product used for unknown indication
     Dosage: UNK

REACTIONS (7)
  - Vision blurred [Unknown]
  - Mucosal discolouration [Unknown]
  - Pain in extremity [Unknown]
  - Chest pain [Unknown]
  - Dizziness [Unknown]
  - Tremor [Unknown]
  - Drug ineffective [Unknown]
